FAERS Safety Report 17297602 (Version 2)
Quarter: 2020Q1

REPORT INFORMATION
  Report Type: Spontaneous
  Country: US (occurrence: US)
  Receive Date: 20200121
  Receipt Date: 20200214
  Transmission Date: 20200409
  Serious: No
  Sender: FDA-Public Use
  Company Number: US-ASTRAZENECA-2020SE06404

PATIENT
  Sex: Female
  Weight: 98.4 kg

DRUGS (1)
  1. BYDUREON BCISE [Suspect]
     Active Substance: EXENATIDE
     Indication: TYPE 2 DIABETES MELLITUS
     Route: 058
     Dates: start: 201910

REACTIONS (9)
  - Injection site bruising [Not Recovered/Not Resolved]
  - Drug delivery system malfunction [Unknown]
  - Injection site indentation [Not Recovered/Not Resolved]
  - Constipation [Not Recovered/Not Resolved]
  - Injection site erythema [Not Recovered/Not Resolved]
  - Needle issue [Unknown]
  - Injection site mass [Not Recovered/Not Resolved]
  - Weight loss poor [Unknown]
  - Device leakage [Unknown]
